FAERS Safety Report 11211502 (Version 1)
Quarter: 2015Q2

REPORT INFORMATION
  Report Type: Spontaneous
  Country: US (occurrence: US)
  Receive Date: 20150623
  Receipt Date: 20150623
  Transmission Date: 20150821
  Serious: Yes (Other)
  Sender: FDA-Public Use
  Company Number: US-AUROBINDO-AUR-APL-2015-05226

PATIENT
  Sex: Male
  Weight: 84 kg

DRUGS (4)
  1. METFORMIN [Interacting]
     Active Substance: METFORMIN HYDROCHLORIDE
     Indication: DIABETES MELLITUS
     Dosage: 1000 MG, UNK
     Route: 065
  2. JANUVIA [Concomitant]
     Active Substance: SITAGLIPTIN PHOSPHATE
     Indication: PRODUCT USED FOR UNKNOWN INDICATION
     Route: 065
  3. LIPITOR [Interacting]
     Active Substance: ATORVASTATIN CALCIUM
     Indication: PRODUCT USED FOR UNKNOWN INDICATION
     Dosage: 40 MG, UNK
     Route: 065
  4. LINIPRIL [Suspect]
     Active Substance: LISINOPRIL
     Indication: BLOOD PRESSURE

REACTIONS (11)
  - Hypertension [Unknown]
  - Somnolence [Unknown]
  - Condition aggravated [Unknown]
  - Amnesia [Unknown]
  - Drug interaction [Unknown]
  - Drug dispensing error [Unknown]
  - Diabetes mellitus [Unknown]
  - Dizziness [Unknown]
  - Abdominal distension [Unknown]
  - Abnormal behaviour [Unknown]
  - Diarrhoea [Not Recovered/Not Resolved]
